FAERS Safety Report 17318220 (Version 4)
Quarter: 2025Q3

REPORT INFORMATION
  Report Type: Spontaneous
  Country: EU (occurrence: EU)
  Receive Date: 20200124
  Receipt Date: 20250915
  Transmission Date: 20251021
  Serious: Yes (Death, Hospitalization, Other)
  Sender: MYLAN
  Company Number: EU-KERNPHARMA-20194896

PATIENT
  Age: 66 Year
  Sex: Male

DRUGS (3)
  1. METFORMIN [Suspect]
     Active Substance: METFORMIN HYDROCHLORIDE
     Indication: Product used for unknown indication
     Dosage: 500 MILLIGRAM, QD (DAILY)
  2. RAMIPRIL [Suspect]
     Active Substance: RAMIPRIL
     Indication: Product used for unknown indication
     Dosage: 10 MILLIGRAM, QD (DAILY)
  3. CHLORTHALIDONE [Suspect]
     Active Substance: CHLORTHALIDONE
     Indication: Product used for unknown indication
     Dosage: 50 MILLIGRAM, QD (DAILY)

REACTIONS (17)
  - Amyloidosis [Fatal]
  - Treatment noncompliance [Fatal]
  - Acute kidney injury [Unknown]
  - Ascites [Unknown]
  - Cholestasis [Unknown]
  - Primary amyloidosis [Unknown]
  - Pericardial effusion [Unknown]
  - Hypotension [Unknown]
  - Fatigue [Unknown]
  - Abdominal distension [Unknown]
  - Weight decreased [Unknown]
  - Hepatomegaly [Unknown]
  - Cardiac hypertrophy [Unknown]
  - Abdominal pain upper [Unknown]
  - Decreased appetite [Unknown]
  - Nausea [Unknown]
  - Hepatic enzyme increased [Unknown]
